FAERS Safety Report 10193887 (Version 1)
Quarter: 2014Q2

REPORT INFORMATION
  Report Type: Spontaneous
  Country: US (occurrence: US)
  Receive Date: 20140524
  Receipt Date: 20140524
  Transmission Date: 20141212
  Serious: No
  Sender: FDA-Public Use
  Company Number: US-SANOFI-AVENTIS-2013SA045335

PATIENT
  Sex: 0

DRUGS (1)
  1. LANTUS [Suspect]
     Dosage: DOSE:100 UNIT(S)
     Route: 051

REACTIONS (10)
  - Burning sensation [Unknown]
  - Pain in extremity [Unknown]
  - Gait disturbance [Unknown]
  - Pain [Unknown]
  - Quality of life decreased [Unknown]
  - Weight increased [Unknown]
  - Hyperhidrosis [Unknown]
  - Vision blurred [Unknown]
  - Heart rate increased [Unknown]
  - Sleep disorder [Unknown]
